FAERS Safety Report 4889535-5 (Version None)
Quarter: 2006Q1

REPORT INFORMATION
  Report Type: 
  Country: None (occurrence: None)
  Receive Date: 20060124
  Receipt Date: 20060116
  Transmission Date: 20060701
  Serious: Yes (Other)
  Sender: FDA-Public Use
  Company Number: PHRM2006FR00530

PATIENT
  Age: 82 Year
  Sex: Female

DRUGS (2)
  1. ESIDRIX [Suspect]
     Indication: HYPERTENSION
     Dosage: 25 MG, QD
     Route: 048
  2. PREVISCAN [Suspect]
     Route: 048

REACTIONS (1)
  - INTERNATIONAL NORMALISED RATIO INCREASED [None]
